FAERS Safety Report 4715854-9 (Version None)
Quarter: 2005Q3

REPORT INFORMATION
  Report Type: 
  Country: None (occurrence: None)
  Receive Date: 20050718
  Receipt Date: 20030129
  Transmission Date: 20060218
  Serious: Yes (Other)
  Sender: FDA-Public Use
  Company Number: JP-ROCHE-330563

PATIENT
  Age: 83 Year
  Sex: Female
  Weight: 42 kg

DRUGS (10)
  1. TAMIFLU [Suspect]
     Route: 048
     Dates: start: 20030124, end: 20030126
  2. MARZULENE S [Concomitant]
     Indication: GASTRITIS
     Route: 048
     Dates: start: 20021029
  3. VITAMEDIN [Concomitant]
     Indication: NEURALGIA
     Route: 048
     Dates: start: 20021029
  4. MERISLON [Concomitant]
     Route: 048
     Dates: start: 20021029
  5. FERROMIA [Concomitant]
     Indication: ANAEMIA
     Route: 048
     Dates: start: 20021029
  6. TANDOSPIRONE CITRATE [Concomitant]
     Dosage: DRUG NAME REPORTED AS SEDIEL
     Route: 048
     Dates: start: 20021029
  7. VOLTAREN [Concomitant]
     Route: 048
     Dates: start: 20021029
  8. CERCINE [Concomitant]
     Route: 048
     Dates: start: 20021029
  9. PELEX [Concomitant]
     Indication: UPPER RESPIRATORY TRACT INFLAMMATION
     Route: 048
     Dates: start: 20030111, end: 20030115
  10. CLARITHROMYCIN [Concomitant]
     Indication: UPPER RESPIRATORY TRACT INFLAMMATION
     Route: 048
     Dates: start: 20030111, end: 20030115

REACTIONS (10)
  - DEHYDRATION [None]
  - JAUNDICE CHOLESTATIC [None]
  - LIP EROSION [None]
  - OEDEMA [None]
  - OLIGURIA [None]
  - PLATELET COUNT DECREASED [None]
  - PNEUMONIA BACTERIAL [None]
  - RENAL IMPAIRMENT [None]
  - SKIN ULCER [None]
  - WHITE BLOOD CELL COUNT INCREASED [None]
